FAERS Safety Report 6520937-7 (Version None)
Quarter: 2009Q4

REPORT INFORMATION
  Report Type: 
  Country: None (occurrence: None)
  Receive Date: 20091229
  Receipt Date: 20091216
  Transmission Date: 20100525
  Serious: Yes (Hospitalization)
  Sender: FDA-Public Use
  Company Number: TW-AMGEN-US382643

PATIENT
  Sex: Female
  Weight: 73.06 kg

DRUGS (7)
  1. ENBREL [Suspect]
     Indication: RHEUMATOID ARTHRITIS
     Route: 058
     Dates: start: 20090116, end: 20091130
  2. PLAQUENIL [Concomitant]
     Route: 065
  3. IMURAN [Concomitant]
     Route: 065
  4. CLONAZEPAM [Concomitant]
     Route: 065
  5. SANDIMMUNE [Concomitant]
     Route: 065
  6. PREDONINE [Concomitant]
     Route: 065
  7. NORVASC [Concomitant]
     Route: 065

REACTIONS (3)
  - ARTHRALGIA [None]
  - ERYTHEMA [None]
  - PRURITUS [None]
